FAERS Safety Report 11185742 (Version 1)
Quarter: 2015Q2

REPORT INFORMATION
  Report Type: Report from Study
  Country: BR (occurrence: BR)
  Receive Date: 20150612
  Receipt Date: 20150612
  Transmission Date: 20150821
  Serious: Yes (Death, Hospitalization, Other)
  Sender: FDA-Public Use
  Company Number: BR-GLAXOSMITHKLINE-BR2015GSK079724

PATIENT
  Age: 86 Year
  Sex: Male
  Weight: 65 kg

DRUGS (3)
  1. FINASTERIDE. [Suspect]
     Active Substance: FINASTERIDE
     Indication: PRODUCT USED FOR UNKNOWN INDICATION
     Dosage: UNK
  2. AMITRIPTYLINE [Concomitant]
     Active Substance: AMITRIPTYLINE
     Indication: SLEEP DISORDER
     Route: 048
  3. DUTASTERIDE. [Suspect]
     Active Substance: DUTASTERIDE
     Indication: BENIGN PROSTATIC HYPERPLASIA
     Dosage: 1 DF, QD
     Route: 048

REACTIONS (10)
  - Delirium [Not Recovered/Not Resolved]
  - Drug ineffective [Recovered/Resolved]
  - Myocardial infarction [Unknown]
  - Vomiting [Unknown]
  - Dyspnoea [Unknown]
  - Hypotension [Unknown]
  - Multi-organ failure [Fatal]
  - Lung neoplasm malignant [Unknown]
  - Coma [Unknown]
  - Pyrexia [Unknown]

NARRATIVE: CASE EVENT DATE: 20150129
